FAERS Safety Report 5000711-3 (Version None)
Quarter: 2006Q2

REPORT INFORMATION
  Report Type: 
  Country: None (occurrence: None)
  Receive Date: 20060512
  Receipt Date: 20060501
  Transmission Date: 20061013
  Serious: Yes (Hospitalization)
  Sender: FDA-Public Use
  Company Number: US-AMGEN-US176800

PATIENT
  Sex: Male
  Weight: 104 kg

DRUGS (30)
  1. ARANESP [Suspect]
     Indication: DIALYSIS
     Route: 042
     Dates: start: 20050819, end: 20060414
  2. VENOFER [Concomitant]
     Route: 042
  3. LEVOCARNITINE [Concomitant]
     Route: 042
  4. HECTORAL [Concomitant]
  5. FLEXERIL [Concomitant]
  6. MIDODRINE HYDROCHLORIDE [Concomitant]
  7. PLAVIX [Concomitant]
  8. FLUDROCORTISONE [Concomitant]
  9. LOMOTIL [Concomitant]
  10. MIRAPEX [Concomitant]
  11. BACTROBAN [Concomitant]
  12. LAMISIL [Concomitant]
  13. HYDROCODONE [Concomitant]
  14. ACETAMINOPHEN [Concomitant]
  15. NYSTATIN [Concomitant]
  16. ASPIRIN [Concomitant]
  17. FOLIC ACID [Concomitant]
  18. PHOSLO [Concomitant]
  19. HYDROXYZINE [Concomitant]
  20. MAGNESIUM OXIDE [Concomitant]
  21. ATARAX [Concomitant]
  22. ZOFRAN [Concomitant]
  23. ZOCOR [Concomitant]
  24. BISACODYL [Concomitant]
     Route: 054
  25. CALCIUM GLUCONATE [Concomitant]
  26. METAMUCIL [Concomitant]
  27. TRAMADOL HCL [Concomitant]
  28. THIAMINE [Concomitant]
  29. VANCOMYCIN [Concomitant]
     Dates: start: 20060410
  30. TOBRAMYCIN [Concomitant]
     Dates: start: 20060410

REACTIONS (5)
  - ANGINA PECTORIS [None]
  - ATRIAL FIBRILLATION [None]
  - FEMUR FRACTURE [None]
  - STAPHYLOCOCCAL INFECTION [None]
  - THERAPEUTIC RESPONSE DECREASED [None]
